FAERS Safety Report 6399728-6 (Version None)
Quarter: 2009Q4

REPORT INFORMATION
  Report Type: 
  Country: None (occurrence: None)
  Receive Date: 20091013
  Receipt Date: 20091013
  Transmission Date: 20100525
  Serious: Yes (Life-Threatening, Other)
  Sender: FDA-Public Use
  Company Number: None

PATIENT
  Sex: Female
  Weight: 74.3899 kg

DRUGS (1)
  1. TOPIRAMATE [Suspect]
     Dosage: 100 MG 4 PILLS A NIGHT ORAL
     Route: 048

REACTIONS (9)
  - DECREASED APPETITE [None]
  - DIARRHOEA [None]
  - DIZZINESS [None]
  - DYSPNOEA [None]
  - ECONOMIC PROBLEM [None]
  - LUNG DISORDER [None]
  - MALAISE [None]
  - ROAD TRAFFIC ACCIDENT [None]
  - SOMNOLENCE [None]
